FAERS Safety Report 8434144-4 (Version None)
Quarter: 2012Q2

REPORT INFORMATION
  Report Type: 
  Country: None (occurrence: None)
  Receive Date: 20120613
  Receipt Date: 20120605
  Transmission Date: 20120825
  Serious: Yes (Hospitalization, Other)
  Sender: FDA-Public Use
  Company Number: US-ACTELION-A-US2003-03908

PATIENT

DRUGS (6)
  1. SPIRONOLACTONE [Concomitant]
  2. COUMADIN [Concomitant]
  3. LASIX [Concomitant]
  4. TRACLEER [Suspect]
     Indication: PULMONARY HYPERTENSION
     Dosage: UNK
     Route: 048
     Dates: start: 20020101
  5. FOLIC ACID [Concomitant]
  6. DIGOXIN [Concomitant]

REACTIONS (9)
  - HEART RATE IRREGULAR [None]
  - DRUG LEVEL CHANGED [None]
  - SYNCOPE [None]
  - OEDEMA [None]
  - LOSS OF CONSCIOUSNESS [None]
  - PRURITUS GENERALISED [None]
  - CARDIAC PACEMAKER INSERTION [None]
  - NEUROPATHY PERIPHERAL [None]
  - BURNING SENSATION [None]
